FAERS Safety Report 4990299-5 (Version None)
Quarter: 2006Q2

REPORT INFORMATION
  Report Type: 
  Country: None (occurrence: None)
  Receive Date: 20060501
  Receipt Date: 20060501
  Transmission Date: 20061013
  Serious: Yes (Life-Threatening, Hospitalization)
  Sender: FDA-Public Use
  Company Number: None

PATIENT
  Sex: Male
  Weight: 104.3273 kg

DRUGS (1)
  1. LOVENOX [Suspect]
     Indication: KNEE OPERATION
     Dosage: INJECTION EVERY 12 HOURS
     Dates: start: 20050808, end: 20050815

REACTIONS (2)
  - CEREBRAL HAEMORRHAGE [None]
  - HEADACHE [None]
